FAERS Safety Report 7768435-7 (Version None)
Quarter: 2011Q3

REPORT INFORMATION
  Report Type: 
  Country: None (occurrence: None)
  Receive Date: 20110922
  Receipt Date: 20101103
  Transmission Date: 20111222
  Serious: No
  Sender: FDA-Public Use
  Company Number: US-ASTRAZENECA-2010SE52126

PATIENT
  Age: 628 Month
  Sex: Female
  Weight: 97.5 kg

DRUGS (2)
  1. SEROQUEL XR [Suspect]
     Indication: ANXIETY
     Route: 048
     Dates: start: 20100901, end: 20100901
  2. SEROQUEL XR [Suspect]
     Dosage: HALF TABLET
     Route: 048

REACTIONS (5)
  - PETECHIAE [None]
  - RASH [None]
  - RASH PRURITIC [None]
  - WRONG TECHNIQUE IN DRUG USAGE PROCESS [None]
  - HYPERHIDROSIS [None]
